FAERS Safety Report 5677580 (Version 14)
Quarter: 2016Q1

REPORT INFORMATION
  Report Type: Spontaneous
  Country: US (occurrence: US)
  Receive Date: 20041119
  Receipt Date: 20160203
  Transmission Date: 20160526
  Serious: Yes (Disabling, Other)
  Sender: FDA-Public Use
  Company Number: US-ROCHE-385941

PATIENT
  Age: 22 Year
  Sex: Female
  Weight: 59 kg

DRUGS (2)
  1. ESTROSTEP [Concomitant]
     Active Substance: ETHINYL ESTRADIOL\NORETHINDRONE ACETATE
     Indication: CONTRACEPTION
     Route: 065
  2. ACCUTANE [Suspect]
     Active Substance: ISOTRETINOIN
     Indication: ACNE
     Route: 048
     Dates: start: 200112, end: 20020515

REACTIONS (17)
  - Inflammatory bowel disease [Unknown]
  - Rectal haemorrhage [Unknown]
  - Gastrointestinal disorder [Unknown]
  - Diarrhoea [Unknown]
  - Dry skin [Recovered/Resolved]
  - Dry eye [Unknown]
  - Blood cholesterol increased [Unknown]
  - Iron deficiency anaemia [Unknown]
  - Intestinal haemorrhage [Unknown]
  - Skin abrasion [Unknown]
  - Frequent bowel movements [Unknown]
  - Lip dry [Recovered/Resolved]
  - Haemorrhoids [Unknown]
  - Proctitis ulcerative [Unknown]
  - Haematochezia [Unknown]
  - Oropharyngeal pain [Unknown]
  - Colitis [Unknown]

NARRATIVE: CASE EVENT DATE: 20020110
